FAERS Safety Report 9345182 (Version 1)
Quarter: 2013Q2

REPORT INFORMATION
  Report Type: Spontaneous
  Country: US (occurrence: US)
  Receive Date: 20130612
  Receipt Date: 20130612
  Transmission Date: 20140414
  Serious: No
  Sender: FDA-Public Use
  Company Number: US-PFIZER INC-2013175349

PATIENT
  Age: 79 Year
  Sex: Female

DRUGS (6)
  1. GABAPENTIN [Suspect]
     Indication: PAIN
     Dosage: 300 MG, UNK
  2. GABAPENTIN [Suspect]
     Indication: PARAESTHESIA
  3. GABAPENTIN [Suspect]
     Indication: HYPOAESTHESIA
  4. VICODIN [Suspect]
     Indication: PAIN
     Dosage: 5 MG HYDROCODONE/ 500 MG PARACETAMOL
  5. VICODIN [Suspect]
     Indication: PARAESTHESIA
  6. VICODIN [Suspect]
     Indication: HYPOAESTHESIA

REACTIONS (1)
  - Off label use [Unknown]
